FAERS Safety Report 12308396 (Version 1)
Quarter: 2016Q2

REPORT INFORMATION
  Report Type: Spontaneous
  Country: US (occurrence: US)
  Receive Date: 20160426
  Receipt Date: 20160426
  Transmission Date: 20160815
  Serious: No
  Sender: FDA-Public Use
  Company Number: US-SENTYNL THERAPEUTICS, INC.  -1051060

PATIENT
  Age: 62 Year
  Sex: Male

DRUGS (6)
  1. COUMADIN [Concomitant]
     Active Substance: WARFARIN SODIUM
  2. METOPROLOL. [Concomitant]
     Active Substance: METOPROLOL
  3. KADIAN [Concomitant]
     Active Substance: MORPHINE SULFATE
  4. TRADJENTA [Concomitant]
     Active Substance: LINAGLIPTIN
  5. LEVORPHANOL TARTRATE. [Suspect]
     Active Substance: LEVORPHANOL TARTRATE
     Indication: BACK PAIN
     Route: 048
     Dates: start: 20160108, end: 20160115
  6. ATENOLOL. [Concomitant]
     Active Substance: ATENOLOL

REACTIONS (4)
  - Drug ineffective [Recovered/Resolved]
  - Influenza like illness [Recovered/Resolved]
  - Hypersensitivity [Recovered/Resolved]
  - Adverse drug reaction [Recovered/Resolved]

NARRATIVE: CASE EVENT DATE: 20160109
